FAERS Safety Report 25702283 (Version 1)
Quarter: 2025Q3

REPORT INFORMATION
  Report Type: Report from Study
  Country: US (occurrence: US)
  Receive Date: 20250819
  Receipt Date: 20250819
  Transmission Date: 20251020
  Serious: Yes (Other)
  Sender: ABBVIE
  Company Number: US-ABBVIE-6418164

PATIENT
  Age: 92 Year

DRUGS (1)
  1. IMBRUVICA [Suspect]
     Active Substance: IBRUTINIB
     Indication: Diffuse large B-cell lymphoma
     Dosage: FORM STRENGTH: 420 MG, LAST ADMIN DATE:2025
     Route: 048
     Dates: start: 202503

REACTIONS (1)
  - Intestinal obstruction [Unknown]

NARRATIVE: CASE EVENT DATE: 20250101
